FAERS Safety Report 19901159 (Version 6)
Quarter: 2023Q1

REPORT INFORMATION
  Report Type: Report from Study
  Country: AU (occurrence: AU)
  Receive Date: 20210929
  Receipt Date: 20230317
  Transmission Date: 20230417
  Serious: Yes (Other)
  Sender: FDA-Public Use
  Company Number: AU-NOVARTISPH-NVSC2020AU290871

PATIENT
  Sex: Female

DRUGS (12)
  1. XOLAIR [Suspect]
     Active Substance: OMALIZUMAB
     Indication: Angioedema
     Dosage: 300 MG, EVERY 4 WEEKS (STRENGTH: 150 MG)
     Route: 065
     Dates: start: 20200525
  2. XOLAIR [Suspect]
     Active Substance: OMALIZUMAB
     Indication: Urticaria pressure
     Dosage: 300 MG, EVERY 4 WEEKS
     Route: 065
     Dates: start: 202008
  3. XOLAIR [Suspect]
     Active Substance: OMALIZUMAB
     Indication: Solar urticaria
     Dosage: 300 MG, EVERY 4 WEEKS
     Route: 065
     Dates: start: 20211206
  4. XOLAIR [Suspect]
     Active Substance: OMALIZUMAB
     Dosage: UNK
     Route: 058
  5. XOLAIR [Suspect]
     Active Substance: OMALIZUMAB
     Dosage: 300 MG, EVERY 4 WEEKS (STRENGTH: 150 MG)
     Route: 058
  6. XOLAIR [Suspect]
     Active Substance: OMALIZUMAB
     Dosage: 300 MG, QMO
     Route: 058
  7. KETOTIFEN [Suspect]
     Active Substance: KETOTIFEN
     Indication: Urticaria pressure
     Dosage: UNK
     Route: 065
  8. KETOTIFEN [Suspect]
     Active Substance: KETOTIFEN
     Indication: Angioedema
  9. KETOTIFEN [Suspect]
     Active Substance: KETOTIFEN
     Indication: Solar urticaria
  10. MONTELUKAST [Suspect]
     Active Substance: MONTELUKAST SODIUM
     Indication: Urticaria pressure
     Dosage: UNK
     Route: 065
  11. MONTELUKAST [Suspect]
     Active Substance: MONTELUKAST SODIUM
     Indication: Angioedema
  12. MONTELUKAST [Suspect]
     Active Substance: MONTELUKAST SODIUM
     Indication: Solar urticaria

REACTIONS (9)
  - Angioedema [Unknown]
  - Solar urticaria [Unknown]
  - Urticaria [Unknown]
  - Pruritus [Unknown]
  - Erythema [Unknown]
  - Blood pressure abnormal [Unknown]
  - Photosensitivity reaction [Unknown]
  - Off label use [Unknown]
  - Drug ineffective [Unknown]
